FAERS Safety Report 12572302 (Version 1)
Quarter: 2016Q3

REPORT INFORMATION
  Report Type: Spontaneous
  Country: US (occurrence: US)
  Receive Date: 20160719
  Receipt Date: 20160719
  Transmission Date: 20161109
  Serious: No
  Sender: FDA-Public Use
  Company Number: US-ASTRAZENECA-2016SE61741

PATIENT
  Sex: Female

DRUGS (1)
  1. PULMICORT FLEXHALER [Suspect]
     Active Substance: BUDESONIDE
     Dosage: 180 MCG, 1 PUFF TWICE DAILY
     Route: 055
     Dates: start: 201606

REACTIONS (3)
  - Condition aggravated [Unknown]
  - Medication error [Unknown]
  - Device malfunction [Unknown]

NARRATIVE: CASE EVENT DATE: 201606
